FAERS Safety Report 5063575-8 (Version None)
Quarter: 2006Q3

REPORT INFORMATION
  Report Type: 
  Country: None (occurrence: None)
  Receive Date: 20060724
  Receipt Date: 20060714
  Transmission Date: 20061208
  Serious: No
  Sender: FDA-Public Use
  Company Number: 805#9#2006-00085

PATIENT
  Age: 3 Day
  Sex: Female

DRUGS (15)
  1. PROSTANDIN-I.V. (ALPROSTADIL (PAOD)) [Suspect]
     Indication: HEART DISEASE CONGENITAL
     Dosage: SEE IMAGE
     Route: 041
     Dates: start: 20050713, end: 20050713
  2. PROSTANDIN-I.V. (ALPROSTADIL (PAOD)) [Suspect]
     Indication: HEART DISEASE CONGENITAL
     Dosage: SEE IMAGE
     Route: 041
     Dates: start: 20050713, end: 20050713
  3. PROSTANDIN-I.V. (ALPROSTADIL (PAOD)) [Suspect]
     Indication: HEART DISEASE CONGENITAL
     Dosage: SEE IMAGE
     Route: 041
     Dates: start: 20050713, end: 20050713
  4. PROSTANDIN-I.V. (ALPROSTADIL (PAOD)) [Suspect]
     Indication: HEART DISEASE CONGENITAL
     Dosage: SEE IMAGE
     Route: 041
     Dates: start: 20050713, end: 20050714
  5. PROSTANDIN-I.V. (ALPROSTADIL (PAOD)) [Suspect]
     Indication: HEART DISEASE CONGENITAL
     Dosage: SEE IMAGE
     Route: 041
     Dates: start: 20050714, end: 20050715
  6. PROSTANDIN-I.V. (ALPROSTADIL (PAOD)) [Suspect]
     Indication: HEART DISEASE CONGENITAL
     Dosage: SEE IMAGE
     Route: 041
     Dates: start: 20050715, end: 20050716
  7. PROSTANDIN-I.V. (ALPROSTADIL (PAOD)) [Suspect]
     Indication: HEART DISEASE CONGENITAL
     Dosage: SEE IMAGE
     Route: 041
     Dates: start: 20050716, end: 20050717
  8. PROSTANDIN-I.V. (ALPROSTADIL (PAOD)) [Suspect]
     Indication: HEART DISEASE CONGENITAL
     Dosage: SEE IMAGE
     Route: 041
     Dates: start: 20050717, end: 20050718
  9. PROSTANDIN-I.V. (ALPROSTADIL (PAOD)) [Suspect]
     Indication: HEART DISEASE CONGENITAL
     Dosage: SEE IMAGE
     Route: 041
     Dates: start: 20050718, end: 20050720
  10. PROSTANDIN-I.V. (ALPROSTADIL (PAOD)) [Suspect]
     Indication: HEART DISEASE CONGENITAL
     Dosage: SEE IMAGE
     Route: 041
     Dates: start: 20050720, end: 20050725
  11. PROSTANDIN-I.V. (ALPROSTADIL (PAOD)) [Suspect]
     Indication: HEART DISEASE CONGENITAL
     Dosage: SEE IMAGE
     Route: 041
     Dates: start: 20050725, end: 20050808
  12. DOPAMINE HYDROCHLORIDE (DOPAMINE) [Concomitant]
  13. CALCIUM GLUCONATE [Concomitant]
  14. 10% SODIUM CHLORIDE (SODIUM CHLORIDE) [Concomitant]
  15. POTASSIUM CHLORIDE [Concomitant]

REACTIONS (2)
  - INFANTILE APNOEIC ATTACK [None]
  - PYREXIA [None]
